FAERS Safety Report 9168538 (Version 1)
Quarter: 2013Q1

REPORT INFORMATION
  Report Type: Spontaneous
  Country: US (occurrence: US)
  Receive Date: 20130318
  Receipt Date: 20130318
  Transmission Date: 20140127
  Serious: Yes (Other)
  Sender: FDA-Public Use
  Company Number: US-PFIZER INC-2013086150

PATIENT
  Age: 50 Year
  Sex: Female
  Weight: 74.8 kg

DRUGS (2)
  1. PREMARIN [Suspect]
     Indication: HORMONE REPLACEMENT THERAPY
     Dosage: 1.25 MG, 1X/DAY
     Dates: start: 1994, end: 201302
  2. HYDROCHLOROTHIAZIDE WITH TRIAMTERENE [Concomitant]
     Indication: HYPERTENSION
     Dosage: 25/37.5MG, 1X/DAY

REACTIONS (3)
  - Depression [Unknown]
  - Blood cholesterol increased [Unknown]
  - Burnout syndrome [Unknown]
